FAERS Safety Report 14429341 (Version 1)
Quarter: 2018Q1

REPORT INFORMATION
  Report Type: Report from Study
  Country: US (occurrence: US)
  Receive Date: 20180123
  Receipt Date: 20180123
  Transmission Date: 20180509
  Serious: No
  Sender: FDA-Public Use
  Company Number: US-AMGEN-USASL2017176550

PATIENT
  Sex: Female

DRUGS (1)
  1. REPATHA [Suspect]
     Active Substance: EVOLOCUMAB
     Indication: PRODUCT USED FOR UNKNOWN INDICATION
     Dosage: 420 MG, ONCE
     Route: 065

REACTIONS (7)
  - Gait disturbance [Unknown]
  - Dyspnoea [Unknown]
  - Osteoarthritis [Not Recovered/Not Resolved]
  - Dry throat [Unknown]
  - Dysstasia [Unknown]
  - Dysphagia [Unknown]
  - Nasal congestion [Unknown]
